FAERS Safety Report 21906185 (Version 1)
Quarter: 2023Q1

REPORT INFORMATION
  Report Type: Spontaneous
  Country: US (occurrence: US)
  Receive Date: 20230124
  Receipt Date: 20230124
  Transmission Date: 20230418
  Serious: No
  Sender: FDA-Public Use
  Company Number: US-ABBVIE-4248916

PATIENT
  Sex: Female

DRUGS (1)
  1. HUMIRA [Suspect]
     Active Substance: ADALIMUMAB
     Indication: Psoriasis
     Route: 058

REACTIONS (7)
  - Immunodeficiency [Unknown]
  - Nasopharyngitis [Unknown]
  - Respiratory syncytial virus infection [Unknown]
  - Malaise [Unknown]
  - Dizziness [Unknown]
  - Pain [Unknown]
  - Arthralgia [Unknown]
